FAERS Safety Report 7722134-6 (Version None)
Quarter: 2011Q3

REPORT INFORMATION
  Report Type: 
  Country: None (occurrence: None)
  Receive Date: 20110825
  Receipt Date: 20110809
  Transmission Date: 20111222
  Serious: Yes (Life-Threatening, Hospitalization, Other)
  Sender: FDA-Public Use
  Company Number: 2011MA011870

PATIENT
  Age: 72 Year
  Sex: Male

DRUGS (8)
  1. SIMVASTATIN [Concomitant]
  2. ACEYLSALICYLIC ACID [Concomitant]
  3. BACLOFEN [Concomitant]
  4. SERTRALINE HYDROCHLORIDE [Suspect]
     Indication: DEPRESSION
     Dosage: 150 MG;QD;PO
     Route: 048
     Dates: start: 20110401, end: 20110702
  5. FOLIC ACID [Concomitant]
  6. FLUDROCORTISONE ACETATE [Concomitant]
  7. NITROGLYCERIN [Concomitant]
  8. ALBUTEROL [Concomitant]

REACTIONS (5)
  - VENTRICULAR TACHYCARDIA [None]
  - LOSS OF CONSCIOUSNESS [None]
  - ELECTROCARDIOGRAM QT PROLONGED [None]
  - PALLOR [None]
  - SYNCOPE [None]
